FAERS Safety Report 13933392 (Version 2)
Quarter: 2017Q3

REPORT INFORMATION
  Report Type: Spontaneous
  Country: ES (occurrence: ES)
  Receive Date: 20170904
  Receipt Date: 20170911
  Transmission Date: 20171127
  Serious: Yes (Congenital Anomaly)
  Sender: FDA-Public Use
  Company Number: PHHY2017ES126387

PATIENT
  Sex: Female

DRUGS (3)
  1. HEPARIN [Concomitant]
     Active Substance: HEPARIN SODIUM
     Indication: FOETAL EXPOSURE DURING PREGNANCY
     Dosage: MATERNAL DOSE: UNKNOWN
     Route: 064
  2. GILENYA [Suspect]
     Active Substance: FINGOLIMOD HYDROCHLORIDE
     Indication: FOETAL EXPOSURE DURING PREGNANCY
     Dosage: MATERNAL DOSE: 0.5 MG, QD
     Route: 064
  3. IODINE. [Concomitant]
     Active Substance: IODINE
     Indication: FOETAL EXPOSURE DURING PREGNANCY
     Dosage: MATERNAL DOSE: UNKNOWN
     Route: 064

REACTIONS (3)
  - Syndactyly [Unknown]
  - Foetal exposure during pregnancy [Unknown]
  - Aplasia [Unknown]
